FAERS Safety Report 9883248 (Version 2)
Quarter: 2016Q3

REPORT INFORMATION
  Report Type: Report from Study
  Country: US (occurrence: US)
  Receive Date: 20140209
  Receipt Date: 20160901
  Transmission Date: 20161109
  Serious: Yes (Other)
  Sender: FDA-Public Use
  Company Number: US-ROCHE-1323887

PATIENT
  Age: 63 Year
  Sex: Female
  Weight: 64.47 kg

DRUGS (6)
  1. CYTOXAN [Concomitant]
     Active Substance: CYCLOPHOSPHAMIDE
     Route: 065
     Dates: start: 20120612
  2. AVASTIN [Suspect]
     Active Substance: BEVACIZUMAB
     Indication: OVARIAN CANCER
     Route: 065
  3. AVASTIN [Suspect]
     Active Substance: BEVACIZUMAB
     Dosage: RECEIVED ON 12/JUN/2012, 26/JUN/2012, 07/AUG/202, 21/AUG/2012, 04/SEP/2012, 18/SEP/2012, 02/OCT/2012
     Route: 065
     Dates: start: 20120522
  4. SYNTHROID [Concomitant]
     Active Substance: LEVOTHYROXINE SODIUM
     Route: 065
  5. GEMZAR [Concomitant]
     Active Substance: GEMCITABINE HYDROCHLORIDE
  6. NORMAL SALINE [Concomitant]
     Active Substance: SODIUM CHLORIDE
     Route: 065

REACTIONS (5)
  - Asthenia [Unknown]
  - Product use issue [Unknown]
  - Hypoglycaemia [Unknown]
  - Squamous cell carcinoma [Unknown]
  - Hypertension [Unknown]

NARRATIVE: CASE EVENT DATE: 20120904
